FAERS Safety Report 5897580-6 (Version None)
Quarter: 2008Q3

REPORT INFORMATION
  Report Type: 
  Country: None (occurrence: None)
  Receive Date: 20080925
  Receipt Date: 20080916
  Transmission Date: 20090109
  Serious: Yes (Other)
  Sender: FDA-Public Use
  Company Number: NO-NOVOPROD-276580

PATIENT
  Sex: Male

DRUGS (10)
  1. NOVORAPID [Suspect]
     Indication: TYPE 2 DIABETES MELLITUS
     Route: 058
  2. NOVOLOG MIX 70/30 [Interacting]
     Indication: DIABETES INSIPIDUS
     Dosage: 40 + 60U
     Route: 058
  3. NOVOLOG MIX 70/30 [Interacting]
     Indication: TYPE 2 DIABETES MELLITUS
  4. BYETTA [Suspect]
     Indication: DIABETES MELLITUS
     Route: 058
     Dates: start: 20080306, end: 20080404
  5. COZAAR [Interacting]
     Indication: HYPERTENSION
     Route: 048
     Dates: start: 20080101
  6. ALLOPUR [Concomitant]
     Indication: PODAGRA
     Route: 048
  7. SPIRIX [Concomitant]
     Indication: HYPERTENSION
     Route: 048
  8. ARANESP [Concomitant]
     Indication: RENAL FAILURE CHRONIC
     Dosage: 20 UG, QD
     Dates: start: 20070101
  9. FUROSEMID                          /00032601/ [Concomitant]
     Indication: HYPERTENSION
     Route: 048
     Dates: start: 20020101
  10. ETALPHA                            /00318501/ [Concomitant]
     Indication: RENAL FAILURE
     Dosage: .25 UG, QD
     Route: 048

REACTIONS (3)
  - DIARRHOEA [None]
  - NAUSEA [None]
  - RENAL FAILURE [None]
